FAERS Safety Report 9323068 (Version 1)
Quarter: 2013Q2

REPORT INFORMATION
  Report Type: Spontaneous
  Country: US (occurrence: US)
  Receive Date: 20130603
  Receipt Date: 20130603
  Transmission Date: 20140414
  Serious: Yes (Other)
  Sender: FDA-Public Use
  Company Number: PHHY2013US054455

PATIENT
  Age: 85 Year
  Sex: Female

DRUGS (1)
  1. ACETYLSALICYLIC ACID [Suspect]
     Indication: HEADACHE
     Dosage: UNK UKN, UNK
     Route: 048

REACTIONS (7)
  - Clavicle fracture [Recovered/Resolved]
  - Gastrointestinal bacterial infection [Not Recovered/Not Resolved]
  - Fall [Recovered/Resolved]
  - Ulcer [Recovered/Resolved]
  - Dyspepsia [Recovered/Resolved]
  - Musculoskeletal discomfort [Recovered/Resolved]
  - Gastritis [Unknown]
